FAERS Safety Report 5533517-7 (Version None)
Quarter: 2007Q4

REPORT INFORMATION
  Report Type: 
  Country: None (occurrence: None)
  Receive Date: 20071204
  Receipt Date: 20071127
  Transmission Date: 20080405
  Serious: Yes (Death, Hospitalization, Other)
  Sender: FDA-Public Use
  Company Number: FR-ELI_LILLY_AND_COMPANY-FR200709000577

PATIENT
  Age: 69 Year
  Sex: Male

DRUGS (7)
  1. GEMZAR [Suspect]
     Indication: PANCREATIC CARCINOMA
     Dosage: 1960 MG, OTHER
     Route: 042
     Dates: start: 20070726, end: 20070726
  2. GEMZAR [Suspect]
     Dosage: 1560 MG, OTHER
     Route: 042
     Dates: start: 20070911
  3. ELOXATIN [Concomitant]
     Indication: PANCREATIC CARCINOMA
     Dosage: 165 MG, OTHER
     Route: 042
     Dates: start: 20070726, end: 20070726
  4. ELOXATIN [Concomitant]
     Dosage: 165 MG, OTHER
     Route: 042
     Dates: start: 20070911
  5. ONDANSETRON [Concomitant]
     Dosage: 8 MG, DAILY (1/D)
     Route: 042
     Dates: start: 20070726, end: 20070911
  6. SOLU-MEDROL [Concomitant]
     Dosage: 60 MG, DAILY (1/D)
     Route: 042
     Dates: start: 20070726
  7. PREDNISONE TAB [Concomitant]
     Dosage: 1 MG/KG, UNKNOWN
     Route: 065
     Dates: start: 20070911

REACTIONS (10)
  - ACUTE RESPIRATORY DISTRESS SYNDROME [None]
  - ANAEMIA [None]
  - BONE MARROW FAILURE [None]
  - COMA [None]
  - GINGIVAL BLEEDING [None]
  - MELAENA [None]
  - PULMONARY ALVEOLAR HAEMORRHAGE [None]
  - SEPSIS [None]
  - THROMBOCYTOPENIA [None]
  - TONGUE HAEMATOMA [None]
